FAERS Safety Report 12136180 (Version 1)
Quarter: 2016Q1

REPORT INFORMATION
  Report Type: Spontaneous
  Country: GB (occurrence: GB)
  Receive Date: 20160302
  Receipt Date: 20160302
  Transmission Date: 20160526
  Serious: Yes (Congenital Anomaly, Other)
  Sender: FDA-Public Use
  Company Number: GB-SUN PHARMACEUTICAL INDUSTRIES LTD-2016RR-112409

PATIENT

DRUGS (8)
  1. CYCLIZINE [Suspect]
     Active Substance: CYCLIZINE
     Indication: VOMITING
     Dosage: 50 MG, TID
     Route: 064
     Dates: start: 20140901, end: 20141030
  2. KALETRA [Suspect]
     Active Substance: LOPINAVIR\RITONAVIR
     Indication: MATERNAL EXPOSURE TIMING UNSPECIFIED
     Route: 064
  3. RITONAVIR. [Suspect]
     Active Substance: RITONAVIR
     Indication: HIV INFECTION
     Dosage: 100 MG, QD
     Route: 064
     Dates: start: 201407, end: 20141201
  4. DARUNAVIR [Suspect]
     Active Substance: DARUNAVIR
     Indication: HIV INFECTION
     Dosage: 800 MG, QD
     Route: 064
     Dates: start: 201407, end: 20141201
  5. NORVIR [Suspect]
     Active Substance: RITONAVIR
     Indication: HIV INFECTION
     Dosage: DOSAGE FORM: UNSPECIFIED, MOTHER DOSING
     Route: 064
     Dates: start: 200801
  6. VALACICLOVIR [Suspect]
     Active Substance: VALACYCLOVIR HYDROCHLORIDE
     Indication: HERPES VIRUS INFECTION
     Dosage: 500 MG, BID
     Route: 064
     Dates: start: 20140918, end: 20141201
  7. MIRTAZAPINE. [Suspect]
     Active Substance: MIRTAZAPINE
     Indication: DEPRESSION
     Dosage: 30 MG, QD
     Route: 064
     Dates: start: 201407, end: 20141201
  8. TRUVADA [Suspect]
     Active Substance: EMTRICITABINE\TENOFOVIR DISOPROXIL FUMARATE
     Indication: HIV INFECTION
     Dosage: UNK UNK, QD
     Route: 064
     Dates: start: 201407, end: 20141201

REACTIONS (4)
  - Skull malformation [Not Recovered/Not Resolved]
  - Foetal exposure during pregnancy [Recovered/Resolved]
  - Cerebral ventricle dilatation [Not Recovered/Not Resolved]
  - Spina bifida [Not Recovered/Not Resolved]

NARRATIVE: CASE EVENT DATE: 20141126
